FAERS Safety Report 9364130 (Version 1)
Quarter: 2013Q2

REPORT INFORMATION
  Report Type: Spontaneous
  Country: NZ (occurrence: NZ)
  Receive Date: 20130624
  Receipt Date: 20130624
  Transmission Date: 20140414
  Serious: Yes (Hospitalization)
  Sender: FDA-Public Use
  Company Number: NZ-ELI_LILLY_AND_COMPANY-NZ201306006218

PATIENT
  Age: 47 Year
  Sex: Female

DRUGS (5)
  1. GEMCITABINE HYDROCHLORIDE [Suspect]
     Dosage: 2 G, OTHER
     Route: 042
     Dates: start: 20120727, end: 20130103
  2. VINORELBINE [Suspect]
     Dosage: 52 MG, OTHER
     Route: 042
     Dates: start: 20120727, end: 20130103
  3. CILAZAPRIL [Concomitant]
     Indication: ESSENTIAL HYPERTENSION
     Dosage: 2.5 MG, QD
     Route: 048
  4. SULFAMETHOXAZOLE AND TRIMETHOPRIM [Concomitant]
     Indication: PROPHYLAXIS
     Dosage: 6 U, WEEKLY (1/W)
     Route: 048
     Dates: start: 20111228
  5. OMEPRAZOLE [Concomitant]
     Indication: GASTROOESOPHAGEAL REFLUX DISEASE
     Dosage: 20 MG, QD
     Route: 048

REACTIONS (3)
  - Thrombophlebitis [Recovered/Resolved]
  - Dermatitis bullous [Recovered/Resolved]
  - Off label use [Unknown]
